FAERS Safety Report 25059957 (Version 3)
Quarter: 2025Q2

REPORT INFORMATION
  Report Type: Report from Study
  Country: US (occurrence: US)
  Receive Date: 20250310
  Receipt Date: 20250408
  Transmission Date: 20250716
  Serious: Yes (Other)
  Sender: ABBVIE
  Company Number: US-ABBVIE-6161018

PATIENT
  Age: 66 Year
  Sex: Female
  Weight: 112.49 kg

DRUGS (1)
  1. RINVOQ [Suspect]
     Active Substance: UPADACITINIB
     Indication: Rheumatoid arthritis
     Dosage: FORM STRENGTH: 15 MILLIGRAM
     Route: 048
     Dates: start: 20231108, end: 202501

REACTIONS (10)
  - Arthritis [Not Recovered/Not Resolved]
  - Scapula fracture [Not Recovered/Not Resolved]
  - Muscle strain [Unknown]
  - Arthralgia [Unknown]
  - Pain in extremity [Unknown]
  - Fibula fracture [Not Recovered/Not Resolved]
  - Sinusitis [Recovered/Resolved]
  - Lower limb fracture [Unknown]
  - Peripheral swelling [Not Recovered/Not Resolved]
  - Nasopharyngitis [Unknown]

NARRATIVE: CASE EVENT DATE: 20240701
